FAERS Safety Report 7595414-5 (Version None)
Quarter: 2011Q3

REPORT INFORMATION
  Report Type: 
  Country: None (occurrence: None)
  Receive Date: 20110707
  Receipt Date: 20110627
  Transmission Date: 20111222
  Serious: Yes (Hospitalization, Other)
  Sender: FDA-Public Use
  Company Number: PT-CELGENEUS-130-20785-11031007

PATIENT
  Age: 52 Year
  Sex: Male

DRUGS (6)
  1. CYCLOPHOSPHAMIDE [Concomitant]
     Indication: MULTIPLE MYELOMA
     Route: 065
  2. PREDNISOLONE [Concomitant]
     Dosage: 10 MILLIGRAM
     Route: 065
  3. RAMIPRIL [Concomitant]
     Indication: HYPERTENSION
     Route: 065
  4. OXYGEN [Concomitant]
     Indication: RESPIRATORY FAILURE
     Route: 065
  5. THALIDOMIDE [Suspect]
     Indication: MULTIPLE MYELOMA
     Dosage: 100 MILLIGRAM
     Route: 048
     Dates: start: 20060301, end: 20060813
  6. ASPIRIN [Concomitant]
     Indication: ISCHAEMIC STROKE
     Route: 065

REACTIONS (4)
  - STENOTROPHOMONAS SEPSIS [None]
  - RESPIRATORY FAILURE [None]
  - VISUAL IMPAIRMENT [None]
  - PARAESTHESIA [None]
